FAERS Safety Report 12755260 (Version 6)
Quarter: 2017Q4

REPORT INFORMATION
  Report Type: Spontaneous
  Country: JP (occurrence: JP)
  Receive Date: 20160916
  Receipt Date: 20171013
  Transmission Date: 20180320
  Serious: Yes (Hospitalization, Disabling, Other)
  Sender: FDA-Public Use
  Company Number: PHHY2016JP126856

PATIENT
  Age: 66 Year
  Sex: Male

DRUGS (9)
  1. THYRADIN-S [Concomitant]
     Active Substance: LEVOTHYROXINE
     Indication: THYROID NEOPLASM
     Dosage: 25 UG, QD
     Route: 048
  2. CAMOSTAT [Concomitant]
     Active Substance: CAMOSTAT
     Indication: GASTROOESOPHAGEAL REFLUX DISEASE
     Dosage: 100 MG, TID
     Route: 048
  3. ZOMETA [Suspect]
     Active Substance: ZOLEDRONIC ACID
     Indication: METASTASES TO BONE
     Dosage: 4 MG, UNK
     Route: 041
     Dates: start: 200903, end: 201103
  4. SODIUM FERRIC CITRATE [Concomitant]
     Active Substance: FERRIC SODIUM CITRATE
     Indication: ANAEMIA
     Dosage: 100 MG, QD
     Route: 048
  5. ZOMETA [Suspect]
     Active Substance: ZOLEDRONIC ACID
     Dosage: UNK
     Route: 041
     Dates: start: 201112
  6. IRTRA [Concomitant]
     Active Substance: IRBESARTAN\TRICHLORMETHIAZIDE
     Indication: HYPERTENSION
     Dosage: 100 MG, QD
     Route: 048
  7. AMLODIPINE [Concomitant]
     Active Substance: AMLODIPINE BESYLATE
     Indication: HYPERTENSION
     Dosage: 2.5 MG, UNK
     Route: 048
  8. SUTENT [Suspect]
     Active Substance: SUNITINIB MALATE
     Indication: RENAL CANCER
     Dosage: 50 MG, QD
     Route: 048
     Dates: start: 200911, end: 201004
  9. AFINITOR [Suspect]
     Active Substance: EVEROLIMUS
     Indication: RENAL CANCER METASTATIC
     Dosage: 10 MG, QD
     Route: 048
     Dates: start: 201111

REACTIONS (11)
  - Nephropathy [Unknown]
  - Osteonecrosis of jaw [Not Recovered/Not Resolved]
  - Tooth loss [Unknown]
  - Purulence [Unknown]
  - Pain [Unknown]
  - Dental fistula [Not Recovered/Not Resolved]
  - Bone disorder [Not Recovered/Not Resolved]
  - Exposed bone in jaw [Unknown]
  - Gingival erythema [Unknown]
  - Gingival swelling [Unknown]
  - Toothache [Unknown]

NARRATIVE: CASE EVENT DATE: 201006
